FAERS Safety Report 8473688-6 (Version None)
Quarter: 2012Q2

REPORT INFORMATION
  Report Type: 
  Country: None (occurrence: None)
  Receive Date: 20120628
  Receipt Date: 20110831
  Transmission Date: 20120825
  Serious: Yes (Life-Threatening)
  Sender: FDA-Public Use
  Company Number: US-MYLANLABS-2011S1018387

PATIENT

DRUGS (1)
  1. CLOZAPINE [Suspect]

REACTIONS (3)
  - LEUKOPENIA [None]
  - GRANULOCYTOPENIA [None]
  - AGRANULOCYTOSIS [None]
